FAERS Safety Report 6073893-2 (Version None)
Quarter: 2009Q1

REPORT INFORMATION
  Report Type: 
  Country: None (occurrence: None)
  Receive Date: 20090211
  Receipt Date: 20090206
  Transmission Date: 20090719
  Serious: Yes (Death, Hospitalization)
  Sender: FDA-Public Use
  Company Number: US-MERCK-0809USA01779

PATIENT
  Age: 76 Year
  Sex: Female
  Weight: 55 kg

DRUGS (5)
  1. JANUMET [Suspect]
     Indication: BLOOD GLUCOSE
     Route: 048
     Dates: start: 20080428, end: 20080708
  2. TOPROL-XL [Concomitant]
     Route: 048
     Dates: end: 20080515
  3. ZOCOR [Concomitant]
     Route: 048
  4. POTASSIUM (UNSPECIFIED) [Concomitant]
     Route: 048
     Dates: start: 20080415, end: 20080708
  5. JANUVIA [Suspect]
     Indication: BLOOD GLUCOSE
     Route: 048
     Dates: end: 20080117

REACTIONS (9)
  - CORONARY ARTERY DISEASE [None]
  - DECREASED APPETITE [None]
  - DIARRHOEA [None]
  - MALAISE [None]
  - NAUSEA [None]
  - OEDEMA PERIPHERAL [None]
  - PNEUMONIA [None]
  - SCLERAL HAEMORRHAGE [None]
  - WEIGHT DECREASED [None]
